FAERS Safety Report 8325241-2 (Version None)
Quarter: 2012Q2

REPORT INFORMATION
  Report Type: 
  Country: None (occurrence: None)
  Receive Date: 20120501
  Receipt Date: 20120426
  Transmission Date: 20120825
  Serious: Yes (Other)
  Sender: FDA-Public Use
  Company Number: FR-ROCHE-1053564

PATIENT
  Sex: Male
  Weight: 106 kg

DRUGS (3)
  1. METHOTREXATE [Suspect]
     Indication: RHEUMATOID ARTHRITIS
     Route: 048
     Dates: start: 20060101
  2. ACTEMRA [Suspect]
     Indication: RHEUMATOID ARTHRITIS
     Route: 042
     Dates: start: 20101001
  3. METHOTREXATE [Suspect]
     Dosage: DOSE DECREASED
     Route: 048
     Dates: start: 20120401

REACTIONS (1)
  - ERECTILE DYSFUNCTION [None]
